FAERS Safety Report 4769112-7 (Version None)
Quarter: 2005Q3

REPORT INFORMATION
  Report Type: 
  Country: None (occurrence: None)
  Receive Date: 20050912
  Receipt Date: 20041130
  Transmission Date: 20060218
  Serious: Yes (Hospitalization)
  Sender: FDA-Public Use
  Company Number: 2004-BP-13072BP

PATIENT

DRUGS (1)
  1. VIRAMUNE [Suspect]
     Dosage: (200 MG), PO
     Route: 048

REACTIONS (3)
  - CHROMATURIA [None]
  - LIVER FUNCTION TEST ABNORMAL [None]
  - MYCOBACTERIUM AVIUM COMPLEX INFECTION [None]
